FAERS Safety Report 7784474-4 (Version None)
Quarter: 2011Q3

REPORT INFORMATION
  Report Type: 
  Country: None (occurrence: None)
  Receive Date: 20110928
  Receipt Date: 20110919
  Transmission Date: 20111222
  Serious: Yes (Hospitalization)
  Sender: FDA-Public Use
  Company Number: PHHY2011HR83848

PATIENT
  Age: 58 Year
  Sex: Female

DRUGS (1)
  1. AMOXICILLIN [Suspect]
     Dosage: UNK UKN, UNK

REACTIONS (3)
  - TUBULOINTERSTITIAL NEPHRITIS [None]
  - RASH [None]
  - RENAL FAILURE ACUTE [None]
